FAERS Safety Report 8556198-7 (Version None)
Quarter: 2012Q3

REPORT INFORMATION
  Report Type: 
  Country: None (occurrence: None)
  Receive Date: 20120801
  Receipt Date: 20120730
  Transmission Date: 20120928
  Serious: Yes (Hospitalization)
  Sender: FDA-Public Use
  Company Number: 2012SP002126

PATIENT
  Age: 45 Year
  Sex: Female
  Weight: 208 kg

DRUGS (14)
  1. KLONOPIN [Suspect]
     Indication: PRODUCT USED FOR UNKNOWN INDICATION
  2. THYROID THERAPY [Suspect]
     Indication: HYPOTHYROIDISM
  3. CELEXA /01400501/ [Concomitant]
     Indication: PRODUCT USED FOR UNKNOWN INDICATION
     Dates: start: 20110101
  4. ALL OTHER THERAPEUTIC PRODUCTS [Concomitant]
     Indication: TYPE 1 DIABETES MELLITUS
  5. LATUDA [Suspect]
     Indication: PARANOIA
     Route: 048
     Dates: start: 20120701
  6. CELEXA /01400501/ [Concomitant]
     Dates: end: 20110101
  7. ABILIFY [Concomitant]
     Indication: PARANOIA
     Dates: end: 20120601
  8. OPIOIDS [Concomitant]
     Indication: PRODUCT USED FOR UNKNOWN INDICATION
  9. ABILIFY [Concomitant]
     Indication: MOOD SWINGS
     Dates: end: 20120601
  10. INSULIN [Concomitant]
     Indication: TYPE 1 DIABETES MELLITUS
  11. LATUDA [Suspect]
     Route: 048
     Dates: start: 20120601, end: 20120701
  12. LYRICA [Concomitant]
     Indication: PRODUCT USED FOR UNKNOWN INDICATION
  13. LATUDA [Suspect]
     Indication: MOOD SWINGS
     Route: 048
     Dates: start: 20120701
  14. LATUDA [Suspect]
     Route: 048
     Dates: start: 20120601, end: 20120701

REACTIONS (4)
  - EXTRASYSTOLES [None]
  - SOMNOLENCE [None]
  - THYROID FUNCTION TEST ABNORMAL [None]
  - SEXUAL DYSFUNCTION [None]
